FAERS Safety Report 5292621-1 (Version None)
Quarter: 2007Q2

REPORT INFORMATION
  Report Type: 
  Country: None (occurrence: None)
  Receive Date: 20070404
  Receipt Date: 20070321
  Transmission Date: 20071010
  Serious: Yes (Life-Threatening, Hospitalization, Other)
  Sender: FDA-Public Use
  Company Number: A-CH2007-14657

PATIENT
  Age: 69 Year
  Sex: Female

DRUGS (8)
  1. TRACLEER [Suspect]
     Indication: PULMONARY HYPERTENSION
     Dosage: 62.5 MG, BID, ORAL
     Route: 048
     Dates: start: 20070305
  2. CLOPIDOGREL [Suspect]
  3. ACETYLSALICYLIC ACID SRT [Suspect]
  4. MARCUMAR [Concomitant]
  5. TORSEMIDE [Concomitant]
  6. BELOC ZOC (METOPROLOL SUCCINATE) [Concomitant]
  7. RAMIPRIL [Concomitant]
  8. PANTOZOL (PANTOPRAZOLE SODIUM) [Concomitant]

REACTIONS (6)
  - ACUTE MYOCARDIAL INFARCTION [None]
  - BLOOD DISORDER [None]
  - DERMATITIS CONTACT [None]
  - OEDEMA [None]
  - PRURITUS [None]
  - STENT PLACEMENT [None]
